FAERS Safety Report 4478574-4 (Version None)
Quarter: 2004Q4

REPORT INFORMATION
  Report Type: 
  Country: None (occurrence: None)
  Receive Date: 20041019
  Receipt Date: 20041009
  Transmission Date: 20050328
  Serious: Yes (Hospitalization, Other)
  Sender: FDA-Public Use
  Company Number: BR-MERCK-0410BRA00306

PATIENT
  Age: 70 Year
  Sex: Male

DRUGS (1)
  1. VIOXX [Suspect]
     Indication: MUSCULOSKELETAL PAIN
     Route: 048
     Dates: start: 20040901, end: 20040901

REACTIONS (1)
  - CEREBROVASCULAR ACCIDENT [None]
